FAERS Safety Report 7240249-6 (Version None)
Quarter: 2011Q1

REPORT INFORMATION
  Report Type: 
  Country: None (occurrence: None)
  Receive Date: 20110113
  Receipt Date: 20110104
  Transmission Date: 20110831
  Serious: Yes (Hospitalization)
  Sender: FDA-Public Use
  Company Number: 2011SP000235

PATIENT
  Age: 40 Year

DRUGS (1)
  1. TEMODAL [Suspect]
     Indication: GLIOBLASTOMA
     Dosage: 300 MG;QD;PO
     Route: 048
     Dates: start: 20100630, end: 20101214

REACTIONS (2)
  - WOUND DEHISCENCE [None]
  - SKIN INFECTION [None]
